FAERS Safety Report 4936355-9 (Version None)
Quarter: 2006Q1

REPORT INFORMATION
  Report Type: 
  Country: None (occurrence: None)
  Receive Date: 20060302
  Receipt Date: 20060213
  Transmission Date: 20060701
  Serious: Yes (Hospitalization, Other)
  Sender: FDA-Public Use
  Company Number: US200602002836

PATIENT
  Age: 60 Year
  Sex: Male

DRUGS (4)
  1. HUMULIN 70/30 [Suspect]
     Dates: start: 19930101, end: 20040101
  2. HUMULIN U [Suspect]
     Dates: start: 20040101
  3. HUMALOG [Suspect]
     Dosage: 130 U, DAILY (1/D)
     Dates: start: 20040101
  4. LANTUS [Concomitant]

REACTIONS (6)
  - BLOOD GLUCOSE DECREASED [None]
  - CORONARY ARTERY OCCLUSION [None]
  - FATIGUE [None]
  - HEART INJURY [None]
  - MALAISE [None]
  - MYOCARDIAL INFARCTION [None]
